FAERS Safety Report 17821762 (Version 1)
Quarter: 2020Q2

REPORT INFORMATION
  Report Type: Spontaneous
  Country: US (occurrence: US)
  Receive Date: 20200525
  Receipt Date: 20200525
  Transmission Date: 20200714
  Serious: No
  Sender: FDA-Public Use
  Company Number: US-009507513-2005USA007231

PATIENT
  Sex: Female

DRUGS (3)
  1. DIPROLENE AF [Suspect]
     Active Substance: BETAMETHASONE DIPROPIONATE
     Dosage: UNK
     Route: 061
  2. BETAMETHASONE DIPROPIONATE. [Suspect]
     Active Substance: BETAMETHASONE DIPROPIONATE
     Dosage: UNK
  3. DIPROLENE [Suspect]
     Active Substance: BETAMETHASONE DIPROPIONATE
     Indication: DERMATITIS ALLERGIC
     Dosage: UNK, PRN
     Route: 061
     Dates: start: 2012

REACTIONS (2)
  - Drug ineffective [Not Recovered/Not Resolved]
  - Dermal absorption impaired [Not Recovered/Not Resolved]

NARRATIVE: CASE EVENT DATE: 2012
